FAERS Safety Report 9305830 (Version 1)
Quarter: 2013Q2

REPORT INFORMATION
  Report Type: Spontaneous
  Country: US (occurrence: US)
  Receive Date: 20130523
  Receipt Date: 20130523
  Transmission Date: 20140414
  Serious: No
  Sender: FDA-Public Use
  Company Number: US-PFIZER INC-2013157412

PATIENT
  Age: 8 Decade
  Sex: Female

DRUGS (1)
  1. LYRICA [Suspect]
     Dosage: 50 MG, 1X/DAY
     Route: 048
     Dates: start: 2013

REACTIONS (1)
  - Rash [Unknown]
